FAERS Safety Report 16938748 (Version 2)
Quarter: 2019Q4

REPORT INFORMATION
  Report Type: Spontaneous
  Country: DE (occurrence: DE)
  Receive Date: 20191020
  Receipt Date: 20191210
  Transmission Date: 20200122
  Serious: Yes (Death, Hospitalization)
  Sender: FDA-Public Use
  Company Number: DE-009507513-1910DEU009885

PATIENT
  Age: 37 Year
  Sex: Male
  Weight: 100 kg

DRUGS (1)
  1. KEYTRUDA [Suspect]
     Active Substance: PEMBROLIZUMAB
     Indication: MALIGNANT MELANOMA
     Dosage: 200 MILLIGRAM
     Dates: start: 201903, end: 201909

REACTIONS (14)
  - Tumour pain [Unknown]
  - Oedema [Unknown]
  - Pain [Unknown]
  - Vomiting [Unknown]
  - Weight decreased [Unknown]
  - General physical health deterioration [Unknown]
  - Haemolytic anaemia [Fatal]
  - Circulatory collapse [Fatal]
  - Aphasia [Unknown]
  - Decreased appetite [Unknown]
  - Asthenia [Unknown]
  - Thrombocytopenia [Fatal]
  - CSF pressure abnormal [Fatal]
  - Cerebral haemorrhage [Fatal]

NARRATIVE: CASE EVENT DATE: 20190912
